FAERS Safety Report 7242220 (Version 13)
Quarter: 2014Q1

REPORT INFORMATION
  Report Type: Spontaneous
  Country: US (occurrence: US)
  Receive Date: 20100111
  Receipt Date: 20140106
  Transmission Date: 20141002
  Serious: Yes (Death, Hospitalization, Other)
  Sender: FDA-Public Use
  Company Number: PHEH2010US00506

PATIENT
  Sex: Female
  Weight: 74.34 kg

DRUGS (7)
  1. AREDIA [Suspect]
     Indication: BREAST CANCER METASTATIC
     Dosage: 90 MG, UNK
     Route: 042
  2. AREDIA [Suspect]
     Indication: METASTASES TO BONE
  3. ZOMETA [Suspect]
  4. ZYRTEC [Concomitant]
  5. AMOXICILLIN [Concomitant]
  6. CELEBREX [Concomitant]
  7. BEXTRA [Concomitant]

REACTIONS (99)
  - Death [Fatal]
  - Osteonecrosis of jaw [Unknown]
  - Injury [Unknown]
  - Disability [Unknown]
  - Pain [Unknown]
  - Anxiety [Unknown]
  - Anhedonia [Unknown]
  - Pulmonary mass [Unknown]
  - Chronic obstructive pulmonary disease [Unknown]
  - Pneumonia [Unknown]
  - Emphysema [Unknown]
  - Dyspnoea [Unknown]
  - Peripheral vascular disorder [Unknown]
  - Blood cholesterol increased [Unknown]
  - Gastrooesophageal reflux disease [Unknown]
  - Chest pain [Unknown]
  - Hypertension [Unknown]
  - Upper respiratory tract infection [Unknown]
  - Groin pain [Unknown]
  - Tenderness [Unknown]
  - Bone pain [Unknown]
  - Pleural effusion [Unknown]
  - Bronchitis [Unknown]
  - Atelectasis [Unknown]
  - Hepatic steatosis [Unknown]
  - Diverticulum [Unknown]
  - Lymphadenopathy [Unknown]
  - Intervertebral disc degeneration [Unknown]
  - Intervertebral disc space narrowing [Unknown]
  - Osteopenia [Unknown]
  - Acute sinusitis [Unknown]
  - Hot flush [Unknown]
  - Exostosis of jaw [Unknown]
  - Nasal congestion [Unknown]
  - Neoplasm progression [Unknown]
  - Malignant neoplasm progression [Unknown]
  - Abdominal pain upper [Unknown]
  - Cervicitis [Unknown]
  - Uterine leiomyoma [Unknown]
  - Myocardial infarction [Unknown]
  - Hyperlipidaemia [Unknown]
  - Arteriosclerosis [Unknown]
  - Renal failure [Unknown]
  - Pulmonary oedema [Unknown]
  - Respiratory distress [Unknown]
  - Presyncope [Unknown]
  - Palmar-plantar erythrodysaesthesia syndrome [Unknown]
  - Skin lesion [Recovered/Resolved]
  - Constipation [Unknown]
  - Insomnia [Unknown]
  - Migraine [Unknown]
  - Thrombocytosis [Unknown]
  - Dyspepsia [Unknown]
  - Herpes zoster [Unknown]
  - Mucosal inflammation [Unknown]
  - Pharyngitis [Unknown]
  - Hiatus hernia [Unknown]
  - Gastritis [Unknown]
  - Osteoarthritis [Unknown]
  - Intervertebral disc protrusion [Unknown]
  - Rhinorrhoea [Unknown]
  - Papilloedema [Unknown]
  - Furuncle [Recovered/Resolved]
  - Hidradenitis [Unknown]
  - Anaemia [Unknown]
  - Renal cyst [Unknown]
  - Benign intracranial hypertension [Unknown]
  - Coronary artery disease [Unknown]
  - Depression [Unknown]
  - Hypoxia [Unknown]
  - Mitral valve incompetence [Unknown]
  - Large intestine polyp [Unknown]
  - Gastric mucosal hypertrophy [Unknown]
  - Oedema mucosal [Unknown]
  - Sinus tachycardia [Unknown]
  - Hyponatraemia [Unknown]
  - Back pain [Unknown]
  - Epistaxis [Unknown]
  - Hypoacusis [Unknown]
  - Soft tissue injury [Unknown]
  - Joint swelling [Unknown]
  - Dysuria [Unknown]
  - Pulmonary granuloma [Unknown]
  - Pulmonary calcification [Unknown]
  - Hepatic lesion [Unknown]
  - Nephrolithiasis [Unknown]
  - Pulmonary embolism [Unknown]
  - Stress fracture [Unknown]
  - Foot fracture [Unknown]
  - Pulmonary fibrosis [Unknown]
  - Liver disorder [Unknown]
  - Vision blurred [Unknown]
  - Spinal pain [Unknown]
  - Metastases to spine [Unknown]
  - Haemangioma [Unknown]
  - Proteinuria [Unknown]
  - Pain in extremity [Unknown]
  - Dizziness [Unknown]
  - Arthralgia [Unknown]
